FAERS Safety Report 14934174 (Version 1)
Quarter: 2018Q2

REPORT INFORMATION
  Report Type: Spontaneous
  Country: IT (occurrence: IT)
  Receive Date: 20180524
  Receipt Date: 20180524
  Transmission Date: 20180711
  Serious: Yes (Other)
  Sender: FDA-Public Use
  Company Number: IT-JUBILANT CADISTA PHARMACEUTICALS-2018JUB00197

PATIENT
  Age: 59 Year
  Sex: Female

DRUGS (1)
  1. METHYLPREDNISOLONE. [Suspect]
     Active Substance: METHYLPREDNISOLONE
     Indication: RELAPSING MULTIPLE SCLEROSIS
     Dosage: 1000 MG, 1X/DAY
     Route: 042

REACTIONS (1)
  - Autoimmune hepatitis [Recovered/Resolved]
